FAERS Safety Report 4970723-4 (Version None)
Quarter: 2006Q1

REPORT INFORMATION
  Report Type: 
  Country: None (occurrence: None)
  Receive Date: 20060207
  Receipt Date: 20050302
  Transmission Date: 20060701
  Serious: Yes (Hospitalization, Other)
  Sender: FDA-Public Use
  Company Number: USA050289846

PATIENT
  Age: 76 Year
  Sex: Female

DRUGS (5)
  1. EVISTA [Suspect]
     Indication: OSTEOPOROSIS
     Dosage: 60 MG DAY
     Dates: start: 20040311, end: 20050123
  2. ZOCOR (SIMVASTATIN SODIUM) [Concomitant]
  3. FLOVENT [Concomitant]
  4. ALBUTEROL SULFATE AUTOHALER [Concomitant]
  5. BENICAR HCT [Concomitant]

REACTIONS (3)
  - DEEP VEIN THROMBOSIS [None]
  - PNEUMONIA [None]
  - PULMONARY EMBOLISM [None]
